FAERS Safety Report 8106743-0 (Version None)
Quarter: 2012Q1

REPORT INFORMATION
  Report Type: 
  Country: None (occurrence: None)
  Receive Date: 20120202
  Receipt Date: 20120127
  Transmission Date: 20120608
  Serious: Yes (Hospitalization)
  Sender: FDA-Public Use
  Company Number: AU-BAYER-2012-006675

PATIENT
  Age: 47 Year
  Sex: Male

DRUGS (5)
  1. NEXAVAR [Suspect]
     Indication: RENAL CELL CARCINOMA
     Dosage: 400 MG, BID
     Dates: start: 20101006, end: 20120112
  2. ENALAPRIL MALEATE [Concomitant]
     Dosage: 10 MG DAILY
     Route: 048
     Dates: start: 20101109
  3. LIPITOR [Concomitant]
     Dosage: 20 MG DAILY
     Route: 048
     Dates: start: 20080101
  4. IRBESARTAN + HYDROCHLOROTHIAZIDE [Concomitant]
     Dosage: 300/25 MG DAILY
     Route: 048
     Dates: start: 20100601
  5. PHYSIOTENS [Concomitant]
     Dosage: 400 MCG DAILY
     Route: 048
     Dates: start: 20101203

REACTIONS (1)
  - ULCERATIVE KERATITIS [None]
